FAERS Safety Report 8618624-4 (Version None)
Quarter: 2012Q3

REPORT INFORMATION
  Report Type: 
  Country: None (occurrence: None)
  Receive Date: 20120824
  Receipt Date: 20120808
  Transmission Date: 20120928
  Serious: Yes (Hospitalization)
  Sender: FDA-Public Use
  Company Number: CO-MERCK-1208COL002546

PATIENT

DRUGS (3)
  1. REBETOL [Suspect]
     Dosage: 100 MG, UNK
     Route: 048
  2. VICTRELIS [Suspect]
     Indication: HEPATITIS C
     Dosage: 2400 MG, UNK
     Route: 048
     Dates: start: 20120530
  3. PEG-INTRON [Suspect]
     Indication: HEPATITIS C
     Dosage: 80 MICROGRAM, UNK
     Route: 058
     Dates: start: 20120530

REACTIONS (4)
  - THROMBOCYTOPENIA [None]
  - FULL BLOOD COUNT ABNORMAL [None]
  - LYMPHOCYTOSIS [None]
  - BICYTOPENIA [None]
